FAERS Safety Report 8356699-0 (Version None)
Quarter: 2012Q2

REPORT INFORMATION
  Report Type: 
  Country: None (occurrence: None)
  Receive Date: 20120514
  Receipt Date: 20120511
  Transmission Date: 20120825
  Serious: Yes (Life-Threatening, Hospitalization, Other)
  Sender: FDA-Public Use
  Company Number: PHHY2012ES039759

PATIENT
  Age: 86 Year
  Sex: Female

DRUGS (5)
  1. SINTROM [Concomitant]
     Indication: ATRIAL FIBRILLATION
     Route: 048
     Dates: start: 20060101, end: 20100520
  2. METFORMIN HCL [Concomitant]
     Indication: DIABETES MELLITUS
     Dosage: 1.7 G, PER DAY
     Route: 048
     Dates: start: 20060101
  3. DIGOXIN [Interacting]
     Indication: ATRIAL FIBRILLATION
     Dosage: 1 MG, PER WEEK
     Route: 048
     Dates: start: 20060101, end: 20110518
  4. RASILEZ [Suspect]
     Indication: HYPERTENSION
     Dosage: 300 MG, PER DAY
     Route: 048
     Dates: start: 20100801, end: 20110518
  5. ALDACTONE [Interacting]
     Indication: HYPERTENSION
     Dosage: 25 MG, PER DAY
     Route: 048
     Dates: start: 20090301, end: 20110518

REACTIONS (8)
  - CARDIOACTIVE DRUG LEVEL INCREASED [None]
  - HYPERKALAEMIA [None]
  - CHOLECYSTITIS ACUTE [None]
  - RENAL FAILURE ACUTE [None]
  - PERITONITIS [None]
  - HYPOTENSION [None]
  - DRUG INTERACTION [None]
  - CARDIOMEGALY [None]
